FAERS Safety Report 5503181-1 (Version None)
Quarter: 2007Q4

REPORT INFORMATION
  Report Type: 
  Country: None (occurrence: None)
  Receive Date: 20071031
  Receipt Date: 20071019
  Transmission Date: 20080405
  Serious: Yes (Other)
  Sender: FDA-Public Use
  Company Number: HQWYE968215DEC04

PATIENT
  Sex: Female

DRUGS (4)
  1. PREMPRO [Suspect]
  2. ESTRACE [Suspect]
  3. PROVERA [Suspect]
  4. CYCRIN [Suspect]

REACTIONS (1)
  - BREAST CANCER METASTATIC [None]
